FAERS Safety Report 6064971-2 (Version None)
Quarter: 2009Q1

REPORT INFORMATION
  Report Type: 
  Country: None (occurrence: None)
  Receive Date: 20090204
  Receipt Date: 20090127
  Transmission Date: 20090719
  Serious: Yes (Hospitalization)
  Sender: FDA-Public Use
  Company Number: DE-ABBOTT-07P-062-0423404-00

PATIENT
  Sex: Female
  Weight: 72 kg

DRUGS (7)
  1. HUMIRA [Suspect]
     Indication: RHEUMATOID ARTHRITIS
     Route: 058
     Dates: start: 20050923, end: 20070703
  2. HUMIRA [Suspect]
     Route: 058
     Dates: start: 20070901, end: 20071001
  3. PREDNISOLONE [Suspect]
     Indication: RHEUMATOID ARTHRITIS
     Route: 048
     Dates: start: 20050601
  4. SALAZOSULFAPYRIDINE [Suspect]
     Indication: DRUG USE FOR UNKNOWN INDICATION
  5. CALCICARE D3 [Concomitant]
     Indication: OSTEOPOROSIS
     Route: 048
     Dates: start: 20061109
  6. RAMIPRIL [Concomitant]
     Indication: HYPERTENSION
     Route: 048
     Dates: start: 20070201
  7. ALENDRONIC ACID [Concomitant]
     Indication: OSTEOPOROSIS
     Route: 048
     Dates: start: 20061109

REACTIONS (6)
  - CANDIDIASIS [None]
  - DEVICE FAILURE [None]
  - FUNGAL INFECTION [None]
  - HEPATIC ENZYME INCREASED [None]
  - HIP ARTHROPLASTY [None]
  - HYPERTENSION [None]
